FAERS Safety Report 18917361 (Version 14)
Quarter: 2025Q2

REPORT INFORMATION
  Report Type: Report from Study
  Country: CA (occurrence: CA)
  Receive Date: 20210219
  Receipt Date: 20250401
  Transmission Date: 20250716
  Serious: Yes (Hospitalization, Other)
  Sender: TAKEDA
  Company Number: CA-TAKEDA-2021TUS009482

PATIENT
  Age: 53 Year
  Sex: Female

DRUGS (27)
  1. VEDOLIZUMAB [Suspect]
     Active Substance: VEDOLIZUMAB
     Indication: Crohn^s disease
  2. VEDOLIZUMAB [Suspect]
     Active Substance: VEDOLIZUMAB
     Dosage: 300 MILLIGRAM, Q4WEEKS
     Dates: start: 20210722
  3. VEDOLIZUMAB [Suspect]
     Active Substance: VEDOLIZUMAB
     Dosage: 300 MILLIGRAM, Q4WEEKS
  4. VEDOLIZUMAB [Suspect]
     Active Substance: VEDOLIZUMAB
     Dosage: 300 MILLIGRAM, Q4WEEKS
  5. VEDOLIZUMAB [Suspect]
     Active Substance: VEDOLIZUMAB
     Dosage: 300 MILLIGRAM, Q4WEEKS
  6. VEDOLIZUMAB [Suspect]
     Active Substance: VEDOLIZUMAB
  7. VEDOLIZUMAB [Suspect]
     Active Substance: VEDOLIZUMAB
  8. PANTOPRAZOLE SODIUM [Suspect]
     Active Substance: PANTOPRAZOLE SODIUM
     Indication: Product used for unknown indication
  9. PULMICORT TURBUHALER [Concomitant]
     Active Substance: BUDESONIDE
     Indication: Asthma
  10. ATROVENT [Concomitant]
     Active Substance: IPRATROPIUM BROMIDE
     Indication: Asthma
  11. VENTOLIN [Concomitant]
     Active Substance: ALBUTEROL SULFATE
     Indication: Asthma
  12. PREDNISONE [Concomitant]
     Active Substance: PREDNISONE
     Indication: Asthma
  13. XARELTO [Concomitant]
     Active Substance: RIVAROXABAN
     Indication: Asthma
  14. TYLENOL [Concomitant]
     Active Substance: ACETAMINOPHEN
  15. ELIQUIS [Concomitant]
     Active Substance: APIXABAN
  16. CALCIUM [Concomitant]
     Active Substance: CALCIUM
  17. DULOXETINE [Concomitant]
     Active Substance: DULOXETINE
  18. TRELEGY ELLIPTA [Concomitant]
     Active Substance: FLUTICASONE FUROATE\UMECLIDINIUM BROMIDE\VILANTEROL TRIFENATATE
  19. SYNTHROID [Concomitant]
     Active Substance: LEVOTHYROXINE SODIUM
  20. LOPRESSOR [Concomitant]
     Active Substance: METOPROLOL TARTRATE
  21. SUCRALFATE [Concomitant]
     Active Substance: SUCRALFATE
  22. TRAZODONE [Concomitant]
     Active Substance: TRAZODONE HYDROCHLORIDE
  23. VITAMIN D3 [Concomitant]
     Active Substance: CHOLECALCIFEROL
  24. NORVASC [Concomitant]
     Active Substance: AMLODIPINE BESYLATE
  25. ATIVAN [Concomitant]
     Active Substance: LORAZEPAM
  26. OXYCODONE [Concomitant]
     Active Substance: OXYCODONE
  27. HYDROMORPHONE [Concomitant]
     Active Substance: HYDROMORPHONE

REACTIONS (9)
  - Crohn^s disease [Unknown]
  - Limb discomfort [Unknown]
  - Pneumonia [Unknown]
  - Treatment noncompliance [Unknown]
  - Off label use [Unknown]
  - Illness [Unknown]
  - Asthenia [Unknown]
  - Pyrexia [Unknown]
  - Fatigue [Unknown]

NARRATIVE: CASE EVENT DATE: 20210722
